FAERS Safety Report 18688760 (Version 2)
Quarter: 2021Q1

REPORT INFORMATION
  Report Type: Other
  Country: GB (occurrence: GB)
  Receive Date: 20201231
  Receipt Date: 20210119
  Transmission Date: 20210419
  Serious: Yes (Disabling, Other)
  Sender: FDA-Public Use
  Company Number: GB-GLENMARK PHARMACEUTICALS-2020GMK051081

PATIENT

DRUGS (6)
  1. MOMETASONE [Suspect]
     Active Substance: MOMETASONE
     Indication: ECZEMA
     Dosage: 0.1 PERCENT, PRN (RECOMMENDATION ^USE TWICE DAILY^)
     Route: 061
  2. HYDROCORTISONE. [Suspect]
     Active Substance: HYDROCORTISONE
     Indication: ECZEMA
     Dosage: 1 PERCENT, PRN (RECOMMENDATION ^USE TWICE DAILY^)
     Route: 061
  3. OTOMIZE EAR SPRAY [ACETIC ACID\DEXAMETHASONE\NEOMYCIN SULFATE] [Suspect]
     Active Substance: ACETIC ACID\DEXAMETHASONE\NEOMYCIN SULFATE
     Indication: EAR INFECTION
     Dosage: UNK, QD (DAILY)
     Route: 065
     Dates: end: 20200604
  4. EUMOVATE [Suspect]
     Active Substance: CLOBETASONE BUTYRATE
     Indication: ECZEMA
     Dosage: 0.05%, DAILY WHEN NEEDED (PRN), RECOMMENDATION USE 1?2 TIMES
     Route: 061
  5. BETAMETHASONE DIPROPIONATE;FUSIDIC ACID [Suspect]
     Active Substance: BETAMETHASONE DIPROPIONATE\FUSIDIC ACID
     Indication: ECZEMA
     Dosage: 0.1 PERCENT, PRN (RECOMMENDATION ^APPLY THINLY TWICE A DAY)
     Route: 061
     Dates: start: 20150310, end: 20150422
  6. HYDROCORTISONE. [Suspect]
     Active Substance: HYDROCORTISONE
     Indication: ECZEMA
     Dosage: 1 PERCENT, PRN (RECOMMENDATION ^USE TWICE DAILY^)
     Route: 061
     Dates: start: 2019

REACTIONS (17)
  - Lymphadenopathy [Recovering/Resolving]
  - Skin exfoliation [Recovering/Resolving]
  - Pruritus [Recovering/Resolving]
  - Medication error [Unknown]
  - Steroid withdrawal syndrome [Recovering/Resolving]
  - Depression suicidal [Recovering/Resolving]
  - Peripheral swelling [Recovered/Resolved]
  - Eye swelling [Recovering/Resolving]
  - Alopecia [Recovering/Resolving]
  - Lymphadenopathy [Recovered/Resolved]
  - Skin infection [Recovering/Resolving]
  - Menstruation delayed [Recovered/Resolved]
  - Erythema [Recovering/Resolving]
  - Skin weeping [Recovering/Resolving]
  - Temperature regulation disorder [Recovering/Resolving]
  - Hyperaesthesia [Recovering/Resolving]
  - Skin atrophy [Recovering/Resolving]

NARRATIVE: CASE EVENT DATE: 20200610
